FAERS Safety Report 7315800-8 (Version None)
Quarter: 2011Q1

REPORT INFORMATION
  Report Type: 
  Country: None (occurrence: None)
  Receive Date: 20110225
  Receipt Date: 20110218
  Transmission Date: 20110831
  Serious: Yes (Hospitalization)
  Sender: FDA-Public Use
  Company Number: US-US-EMD SERONO, INC.-7042912

PATIENT
  Sex: Male

DRUGS (3)
  1. VICODIN [Concomitant]
  2. REBIF [Suspect]
     Indication: MULTIPLE SCLEROSIS
     Route: 058
     Dates: end: 20101201
  3. BACLOFEN [Concomitant]

REACTIONS (4)
  - INFLUENZA LIKE ILLNESS [None]
  - FALL [None]
  - PNEUMONIA [None]
  - MUSCULOSKELETAL STIFFNESS [None]
